FAERS Safety Report 8843588 (Version 1)
Quarter: 2012Q4

REPORT INFORMATION
  Report Type: 
  Country: US (occurrence: US)
  Receive Date: 20121016
  Receipt Date: 20121016
  Transmission Date: 20130627
  Serious: Yes (Death)
  Sender: FDA-Public Use
  Company Number: US-ROCHE-1141105

PATIENT
  Sex: Male

DRUGS (1)
  1. NUTROPIN [Suspect]
     Indication: PANCREATIC CARCINOMA
     Route: 050

REACTIONS (3)
  - Death [Fatal]
  - Fibula fracture [Unknown]
  - Osteoporosis [Unknown]
